FAERS Safety Report 6846610-3 (Version None)
Quarter: 2010Q3

REPORT INFORMATION
  Report Type: 
  Country: None (occurrence: None)
  Receive Date: 20100715
  Receipt Date: 20070919
  Transmission Date: 20110219
  Serious: Yes (Other)
  Sender: FDA-Public Use
  Company Number: US-PFIZER INC-2007079396

PATIENT
  Age: 67 Year
  Sex: Male

DRUGS (10)
  1. CHANTIX [Suspect]
     Indication: SMOKING CESSATION THERAPY
     Route: 048
     Dates: start: 20070903, end: 20070914
  2. NORVASC [Concomitant]
  3. LASIX [Concomitant]
  4. MONOPRIL [Concomitant]
  5. CRESTOR [Concomitant]
  6. TRICOR [Concomitant]
  7. PLAVIX [Concomitant]
  8. ZETIA [Concomitant]
  9. ISOSORBIDE MONONITRATE [Concomitant]
  10. ACETYLSALICYLIC ACID [Concomitant]

REACTIONS (6)
  - ASTHENIA [None]
  - CHEST PAIN [None]
  - COGNITIVE DISORDER [None]
  - FEELING ABNORMAL [None]
  - LISTLESS [None]
  - MALAISE [None]
